FAERS Safety Report 8321022 (Version 2)
Quarter: 2017Q3

REPORT INFORMATION
  Report Type: Spontaneous
  Country: FR (occurrence: FR)
  Receive Date: 20120104
  Receipt Date: 20170725
  Transmission Date: 20171128
  Serious: Yes (Death, Disabling, Congenital Anomaly, Other)
  Sender: FDA-Public Use
  Company Number: FR-SANOFI-AVENTIS-2011SA085703

PATIENT
  Sex: Male

DRUGS (3)
  1. CORDARONE [Suspect]
     Active Substance: AMIODARONE HYDROCHLORIDE
     Route: 064
  2. TENORMIN [Suspect]
     Active Substance: ATENOLOL
     Route: 064
  3. LOVENOX [Suspect]
     Active Substance: ENOXAPARIN SODIUM
     Route: 064

REACTIONS (3)
  - Foetal growth restriction [Fatal]
  - Premature baby [Unknown]
  - Exposure during pregnancy [Unknown]

NARRATIVE: CASE EVENT DATE: 20110812
